FAERS Safety Report 4506639-7 (Version None)
Quarter: 2004Q4

REPORT INFORMATION
  Report Type: 
  Country: None (occurrence: None)
  Receive Date: 20041117
  Receipt Date: 20041104
  Transmission Date: 20050328
  Serious: Yes (Hospitalization, Other)
  Sender: FDA-Public Use
  Company Number: 2004088594

PATIENT
  Sex: Female
  Weight: 63.5036 kg

DRUGS (8)
  1. NORVASC [Suspect]
     Indication: HYPERTENSION
     Dosage: 2.5 MG
  2. ZOLOFT [Suspect]
     Indication: DEPRESSION
     Dosage: 100 MG
  3. CONJUGATED ESTROGENS [Concomitant]
  4. ALL OTHER THERAPEUTIC PRODUCTS (ALL OTHER THERAPEUTIC PRODUCTS) [Concomitant]
  5. TRAZODONE HCL [Concomitant]
  6. ALPRAZOLAM [Concomitant]
  7. PANTOPRAZOLE (PANTOPRAZOLE) [Concomitant]
  8. PROPACET (DEXTROPROPOXYPHENE NAPAILATE, PARACEMTAOL) [Concomitant]

REACTIONS (4)
  - EYE OPERATION [None]
  - GASTROOESOPHAGEAL REFLUX DISEASE [None]
  - HYPERTENSION [None]
  - RETINAL TEAR [None]
